FAERS Safety Report 7683542-5 (Version None)
Quarter: 2011Q3

REPORT INFORMATION
  Report Type: 
  Country: None (occurrence: None)
  Receive Date: 20110815
  Receipt Date: 20110805
  Transmission Date: 20111222
  Serious: Yes (Other)
  Sender: FDA-Public Use
  Company Number: FR-MERCK-1108USA01106

PATIENT
  Age: 58 Year
  Sex: Female
  Weight: 90 kg

DRUGS (27)
  1. PROPRANOLOL [Suspect]
     Indication: HYPERTENSION
     Route: 048
     Dates: start: 19930101
  2. TANAKAN [Suspect]
     Route: 048
     Dates: start: 19940101
  3. BISOPROLOL FUMARATE [Concomitant]
     Route: 065
     Dates: start: 20060401
  4. NEXIUM [Concomitant]
     Route: 065
     Dates: start: 20060401
  5. MEDIATOR [Suspect]
     Route: 048
     Dates: start: 19780930, end: 19790519
  6. AMLODIPINE BESYLATE [Suspect]
     Route: 048
     Dates: start: 19940101
  7. DIGOXIN [Suspect]
     Dosage: POSOLOGY DEPENDING ON DIGOXINEMIA
     Route: 048
     Dates: start: 20030411
  8. MEDIATOR [Suspect]
     Indication: TYPE 2 DIABETES MELLITUS
     Route: 048
     Dates: start: 19771013, end: 19780930
  9. MEDIATOR [Suspect]
     Route: 048
     Dates: start: 19790519, end: 20040219
  10. ADANCOR [Suspect]
     Route: 048
     Dates: end: 19980304
  11. PLAVIX [Concomitant]
     Route: 065
     Dates: start: 20060401
  12. FLECAINIDE ACETATE [Suspect]
     Route: 048
     Dates: start: 19940101, end: 20030411
  13. CYCLO 3 [Suspect]
     Route: 048
     Dates: start: 19940101
  14. COZAAR [Suspect]
     Indication: HYPERTENSION
     Route: 048
     Dates: start: 19980101
  15. PRAVASTATIN [Concomitant]
     Route: 065
     Dates: start: 20060401
  16. ISOPTIN [Suspect]
     Route: 048
     Dates: start: 19980304, end: 20010316
  17. RIBATRAN [Suspect]
     Route: 048
  18. ALDOMET [Suspect]
     Route: 048
     Dates: start: 19771013, end: 19930101
  19. PREVISCAN [Suspect]
     Dosage: POSOLOGY DEPENDING OR INR
     Route: 048
     Dates: start: 19940101
  20. IKOREL [Suspect]
     Route: 048
     Dates: start: 20020315
  21. CORDARONE [Suspect]
     Route: 048
     Dates: start: 19980101, end: 20030411
  22. LERCANIDIPINE [Suspect]
     Route: 048
     Dates: start: 20010316
  23. DIAMICRON [Suspect]
     Indication: TYPE 2 DIABETES MELLITUS
     Dosage: 0.5 - 2 TABLETS DAILY
     Route: 048
     Dates: start: 19780101, end: 20060101
  24. SINTROM [Suspect]
     Route: 048
     Dates: start: 19830611
  25. NEURONTIN [Suspect]
     Indication: TREMOR
     Route: 048
     Dates: start: 20030301
  26. HEPARIN [Concomitant]
     Dosage: IVSE
     Route: 042
     Dates: start: 19940630
  27. ASPIRIN [Concomitant]
     Route: 065
     Dates: start: 20060401

REACTIONS (2)
  - PULMONARY HYPERTENSION [None]
  - TRICUSPID VALVE DISEASE [None]
